FAERS Safety Report 10269713 (Version 1)
Quarter: 2014Q2

REPORT INFORMATION
  Report Type: Spontaneous
  Country: US (occurrence: None)
  Receive Date: 20140625
  Receipt Date: 20140625
  Transmission Date: 20141212
  Serious: Yes (Hospitalization, Other)
  Sender: FDA-Public Use
  Company Number: NSR_01578_2014

PATIENT
  Age: 44 Year
  Sex: Female

DRUGS (4)
  1. BACLOFEN (BACLOFEN) [Suspect]
     Indication: PRODUCT USED FOR UNKNOWN INDICATION
     Dosage: 600 MG, [NOT THE PRESCRIBED DOSE, SUPPOSED DOSE] ORAL)
  2. TRAMADOL (TRAMADOL) [Suspect]
     Indication: PRODUCT USED FOR UNKNOWN INDICATION
     Dosage: ([NOT PRESCRIBED DOSE, DF] ORAL)
  3. AMITRIPTYLINE (AMITRIPTYLINE) [Suspect]
     Indication: PRODUCT USED FOR UNKNOWN INDICATION
     Dosage: ([NOT THE PRESCRIBED DOSE, DF] ORAL)
  4. PARACETAMOL (PARACETAMOL) [Suspect]
     Indication: PRODUCT USED FOR UNKNOWN INDICATION
     Dosage: ([NOT THE PRESCRIBED DOSE, DF] ORAL)

REACTIONS (5)
  - Toxicity to various agents [None]
  - Intentional overdose [None]
  - Hypertension [None]
  - Tachycardia [None]
  - Coma scale abnormal [None]
